FAERS Safety Report 9655526 (Version 3)
Quarter: 2013Q4

REPORT INFORMATION
  Report Type: Report from Study
  Country: TH (occurrence: TH)
  Receive Date: 20131029
  Receipt Date: 20131120
  Transmission Date: 20140711
  Serious: Yes (Other)
  Sender: FDA-Public Use
  Company Number: TH-ROCHE-1296336

PATIENT
  Age: 65 Year
  Sex: Male

DRUGS (4)
  1. ALTEPLASE [Suspect]
     Indication: PERIPHERAL ISCHAEMIA
     Route: 041
  2. ALTEPLASE [Suspect]
     Indication: EMBOLISM ARTERIAL
  3. HEPARIN [Suspect]
     Indication: EMBOLISM ARTERIAL
     Dosage: 500 UNITS/HR
     Route: 065
  4. HEPARIN [Suspect]
     Indication: THROMBOSIS PROPHYLAXIS

REACTIONS (2)
  - Vascular pseudoaneurysm [Recovered/Resolved]
  - Instillation site complication [Unknown]
